FAERS Safety Report 10797345 (Version 1)
Quarter: 2015Q1

REPORT INFORMATION
  Report Type: Spontaneous
  Country: ES (occurrence: ES)
  Receive Date: 20150216
  Receipt Date: 20150216
  Transmission Date: 20150721
  Serious: Yes (Death)
  Sender: FDA-Public Use
  Company Number: ES-009507513-1502ESP004072

PATIENT
  Age: 40 Year
  Sex: Female

DRUGS (8)
  1. DESVENLAFAXINE. [Interacting]
     Active Substance: DESVENLAFAXINE
     Dosage: 50 MG, ONCE
     Route: 048
     Dates: start: 20141223, end: 20141223
  2. TRANXILIUM [Concomitant]
     Active Substance: CLORAZEPATE DIPOTASSIUM
  3. NARDIL [Interacting]
     Active Substance: PHENELZINE SULFATE
     Indication: DEPRESSION
     Dosage: IN MARCH 10 MG/DAY, PREVIOUSLY TO ADMISSION 30 MG/DAY (IMPORTED DRUG)
     Route: 048
     Dates: start: 201403, end: 20141223
  4. NOREBOX [Concomitant]
     Route: 048
     Dates: start: 201402, end: 20141222
  5. IVABRADINE [Concomitant]
     Active Substance: IVABRADINE
  6. REXER [Suspect]
     Active Substance: MIRTAZAPINE
     Route: 048
     Dates: start: 201402, end: 20141223
  7. NARDIL [Interacting]
     Active Substance: PHENELZINE SULFATE
     Dosage: IN MARCH 10 MG/DAY, PREVIOUSLY TO ADMISSION 30 MG/DAY (IMPORTED DRUG)
     Route: 048
     Dates: start: 20141204, end: 20141223
  8. ETUMINE [Interacting]
     Active Substance: CLOTHIAPINE
     Dosage: ON DEMAND
     Route: 048
     Dates: start: 201402, end: 20141223

REACTIONS (1)
  - Neuroleptic malignant syndrome [Fatal]

NARRATIVE: CASE EVENT DATE: 20141223
